FAERS Safety Report 17733117 (Version 1)
Quarter: 2020Q2

REPORT INFORMATION
  Report Type: Spontaneous
  Country: GB (occurrence: GB)
  Receive Date: 20200501
  Receipt Date: 20200501
  Transmission Date: 20200714
  Serious: Yes (Hospitalization)
  Sender: FDA-Public Use
  Company Number: GB-TEVA-2020-GB-1227831

PATIENT
  Age: 34 Year
  Sex: Female

DRUGS (12)
  1. HYOSCINE BUTYLBROMIDE [Concomitant]
     Active Substance: BUTYLSCOPOLAMINE BROMIDE
     Dosage: 10MG OR 20MG FOUR TIMES DAILY
     Route: 048
  2. MORPHINE [Concomitant]
     Active Substance: MORPHINE
     Dosage: 2.5MG TO 5MG EVERY THREE HOURS
     Route: 048
  3. PARACETAMOL [Concomitant]
     Active Substance: ACETAMINOPHEN
     Dosage: 500MG/1G FOUR TIMES PER DAY
     Route: 048
  4. PROMETHAZINE HYDROCHLORIDE. [Concomitant]
     Active Substance: PROMETHAZINE HYDROCHLORIDE
     Dosage: 100 MILLIGRAM DAILY; ADDITIONAL INFO: 25MG/5ML
     Route: 048
  5. LITHIUM CARBONATE. [Concomitant]
     Active Substance: LITHIUM CARBONATE
     Dosage: 800 MILLIGRAM DAILY; AT NIGHT
     Route: 048
  6. FERROUS FUMARATE [Concomitant]
     Active Substance: FERROUS FUMARATE
     Dosage: 420 MG
     Route: 048
  7. OLANZAPINE. [Suspect]
     Active Substance: OLANZAPINE
     Dosage: 10 MG
     Route: 048
     Dates: end: 20200408
  8. AIROMIR [Concomitant]
     Active Substance: ALBUTEROL SULFATE
     Dosage: 100MICROGRAMS/DOSE (UNIT DOSE: 2 DF)
     Route: 055
  9. ENOXAPARIN SODIUM. [Concomitant]
     Active Substance: ENOXAPARIN SODIUM
     Dosage: AT 2PM; UNIT DOSE: 120 MG; ADDITIONAL INFO: 120MG/0.8ML
     Route: 058
  10. MELATONIN [Concomitant]
     Active Substance: MELATONIN
     Dosage: 2 MILLIGRAM DAILY; AT NIGHT
     Route: 048
  11. MORPHINE [Concomitant]
     Active Substance: MORPHINE
     Route: 048
  12. LANSOPRAZOLE. [Concomitant]
     Active Substance: LANSOPRAZOLE
     Dosage: 30 MILLIGRAM DAILY; IN THE MORNING
     Route: 048

REACTIONS (2)
  - Chest pain [Recovering/Resolving]
  - Myocarditis [Recovering/Resolving]

NARRATIVE: CASE EVENT DATE: 20200408
